FAERS Safety Report 8906599 (Version 1)
Quarter: 2012Q4

REPORT INFORMATION
  Report Type: 
  Country: US (occurrence: US)
  Receive Date: 20121114
  Receipt Date: 20121114
  Transmission Date: 20130627
  Serious: Yes (Disabling, Other)
  Sender: FDA-Public Use
  Company Number: US-US-EMD SERONO, INC.-7173033

PATIENT
  Sex: Female

DRUGS (2)
  1. REBIF [Suspect]
     Indication: PRODUCT USED FOR UNKNOWN INDICATION
     Dates: start: 201208, end: 20121107
  2. UNSPECIFIED SEIZURE MEDICATION [Concomitant]
     Indication: CONVULSION

REACTIONS (4)
  - Blindness [Unknown]
  - Convulsion [Not Recovered/Not Resolved]
  - Asthenia [Unknown]
  - Injection site bruising [Not Recovered/Not Resolved]
